FAERS Safety Report 17704829 (Version 2)
Quarter: 2020Q2

REPORT INFORMATION
  Report Type: Spontaneous
  Country: US (occurrence: US)
  Receive Date: 20200424
  Receipt Date: 20200512
  Transmission Date: 20200714
  Serious: No
  Sender: FDA-Public Use
  Company Number: US-SA-2020SA101222

PATIENT
  Age: 43 Year
  Sex: Female

DRUGS (1)
  1. DUPIXENT [Suspect]
     Active Substance: DUPILUMAB
     Indication: DERMATITIS ATOPIC
     Dosage: 300 MG, QOW
     Route: 058
     Dates: start: 20200303, end: 20200501

REACTIONS (6)
  - Ocular hyperaemia [Unknown]
  - Anxiety [Unknown]
  - Hypersensitivity [Unknown]
  - Insomnia [Unknown]
  - Dyspnoea [Unknown]
  - Eye pruritus [Unknown]

NARRATIVE: CASE EVENT DATE: 202003
